FAERS Safety Report 4775349-3 (Version None)
Quarter: 2005Q3

REPORT INFORMATION
  Report Type: 
  Country: None (occurrence: None)
  Receive Date: 20050922
  Receipt Date: 20050914
  Transmission Date: 20060218
  Serious: Yes (Hospitalization)
  Sender: FDA-Public Use
  Company Number: US-BOEHRINGER INGELHEIM PHARMACEUTICALS, INC.-2005-BP-16401BP

PATIENT
  Sex: Female

DRUGS (17)
  1. MIRAPEX [Suspect]
     Indication: RESTLESS LEGS SYNDROME
     Route: 048
     Dates: start: 20030101
  2. MIRAPEX [Suspect]
     Indication: SLEEP APNOEA SYNDROME
  3. COMBIVENT [Concomitant]
     Indication: ASTHMA
     Route: 055
     Dates: start: 19950101
  4. ADVAIR DISKUS 100/50 [Concomitant]
     Route: 055
  5. HYDROCHLOROTHIAZIDE [Concomitant]
     Route: 048
  6. CYMBALTA [Concomitant]
     Route: 048
  7. ALLEGRA [Concomitant]
     Route: 048
  8. GLUCOPHAGE XR [Concomitant]
     Route: 048
  9. ALTACE [Concomitant]
     Route: 048
  10. PRILOSEC CR [Concomitant]
     Route: 048
  11. VICODIN ES [Concomitant]
     Route: 048
  12. CYCLOBENZAPRINE HCL [Concomitant]
     Route: 048
  13. SINGULAIR [Concomitant]
     Route: 048
  14. VITAMIN E [Concomitant]
     Route: 048
  15. MULTI-VITAMINS [Concomitant]
     Route: 048
  16. CALCIUM PLUS D [Concomitant]
     Route: 048
  17. ASCORBIC ACID [Concomitant]
     Route: 048

REACTIONS (3)
  - ARTHRITIS [None]
  - ASTHMA [None]
  - SURGERY [None]
